FAERS Safety Report 18645316 (Version 3)
Quarter: 2021Q1

REPORT INFORMATION
  Report Type: Spontaneous
  Country: US (occurrence: US)
  Receive Date: 20201222
  Receipt Date: 20210303
  Transmission Date: 20210419
  Serious: Yes (Death, Other)
  Sender: FDA-Public Use
  Company Number: US-009507513-2012USA008624

PATIENT
  Sex: Female
  Weight: 81.18 kg

DRUGS (3)
  1. JANUVIA [Suspect]
     Active Substance: SITAGLIPTIN PHOSPHATE
     Indication: TYPE 2 DIABETES MELLITUS
     Dosage: 100 MILLIGRAM, ONCE DAILY
     Route: 048
     Dates: start: 20140203, end: 20170510
  2. BYDUREON [Suspect]
     Active Substance: EXENATIDE
     Indication: TYPE 2 DIABETES MELLITUS
     Dosage: UNK, ONCE DAILY
     Dates: start: 20140403, end: 20140501
  3. ACTOS [Suspect]
     Active Substance: PIOGLITAZONE HYDROCHLORIDE
     Dosage: UNK

REACTIONS (61)
  - Pancreatic atrophy [Unknown]
  - Coronary arterial stent insertion [Unknown]
  - Toe operation [Unknown]
  - Osteoarthritis [Unknown]
  - Exostosis [Unknown]
  - Spinal stenosis [Unknown]
  - Aortic arteriosclerosis [Unknown]
  - Dry eye [Unknown]
  - Infection [Unknown]
  - Biliary obstruction [Unknown]
  - Chronic kidney disease [Unknown]
  - Knee arthroplasty [Unknown]
  - Bipolar disorder [Unknown]
  - Sleep apnoea syndrome [Unknown]
  - Ankle operation [Unknown]
  - Pancreatic steatosis [Unknown]
  - Spinal deformity [Unknown]
  - Skin disorder [Unknown]
  - Decreased vibratory sense [Unknown]
  - Diverticulum intestinal [Unknown]
  - Hyperlipidaemia [Unknown]
  - Atelectasis [Unknown]
  - Depression [Unknown]
  - Pancreatic stent removal [Unknown]
  - Cardiac dysfunction [Unknown]
  - Chronic obstructive pulmonary disease [Unknown]
  - Blood glucose abnormal [Unknown]
  - Cholecystectomy [Unknown]
  - Adenocarcinoma pancreas [Fatal]
  - Pancreatic duct dilatation [Unknown]
  - Fall [Unknown]
  - Bone density decreased [Unknown]
  - Adrenal mass [Unknown]
  - Arteriosclerosis coronary artery [Unknown]
  - Red cell distribution width increased [Unknown]
  - Hypersensitivity [Unknown]
  - Hysterectomy [Unknown]
  - Neuropathy peripheral [Unknown]
  - Osteosclerosis [Unknown]
  - Nerve compression [Unknown]
  - Spinal retrolisthesis [Unknown]
  - Spinal deformity [Unknown]
  - Vertebral foraminal stenosis [Unknown]
  - Pain in extremity [Unknown]
  - Device dislocation [Unknown]
  - Obesity [Unknown]
  - Surgery [Unknown]
  - Cardiomegaly [Unknown]
  - Asthma [Unknown]
  - Back pain [Unknown]
  - Lymphocyte percentage decreased [Unknown]
  - Diverticulitis [Unknown]
  - Bronchiectasis [Unknown]
  - Atelectasis [Unknown]
  - Lipoma [Unknown]
  - Appendicectomy [Unknown]
  - Compression fracture [Unknown]
  - Spinal osteoarthritis [Unknown]
  - Hepatic steatosis [Unknown]
  - Weight increased [Unknown]
  - Blood potassium decreased [Unknown]

NARRATIVE: CASE EVENT DATE: 2016
